FAERS Safety Report 20495437 (Version 1)
Quarter: 2022Q1

REPORT INFORMATION
  Report Type: Spontaneous
  Country: US (occurrence: US)
  Receive Date: 20220221
  Receipt Date: 20220221
  Transmission Date: 20220423
  Serious: No
  Sender: FDA-Public Use
  Company Number: US-GLAXOSMITHKLINE-US2022AMR030306

PATIENT

DRUGS (3)
  1. IMITREX [Interacting]
     Active Substance: SUMATRIPTAN SUCCINATE
     Indication: Migraine
     Dosage: UNK
  2. RIZATRIPTAN [Interacting]
     Active Substance: RIZATRIPTAN
     Indication: Migraine
     Dosage: UNK
  3. NURTEC ODT [Concomitant]
     Active Substance: RIMEGEPANT SULFATE
     Indication: Migraine
     Dosage: UNK

REACTIONS (2)
  - Chest pain [Unknown]
  - Drug interaction [Unknown]
